FAERS Safety Report 18114662 (Version 15)
Quarter: 2022Q1

REPORT INFORMATION
  Report Type: Report from Study
  Country: US (occurrence: US)
  Receive Date: 20200805
  Receipt Date: 20220217
  Transmission Date: 20220424
  Serious: Yes (Hospitalization, Other)
  Sender: FDA-Public Use
  Company Number: US-SHIRE-US202024879

PATIENT
  Age: 42 Year
  Sex: Male

DRUGS (7)
  1. HEMOFIL [Suspect]
     Active Substance: ANTIHEMOPHILIC FACTOR HUMAN
     Indication: Product used for unknown indication
     Dosage: 4050 INTERNATIONAL UNIT
     Route: 042
  2. HEMOFIL [Suspect]
     Active Substance: ANTIHEMOPHILIC FACTOR HUMAN
     Dosage: 3000 INTERNATIONAL UNIT
     Route: 042
  3. HEMOFIL [Suspect]
     Active Substance: ANTIHEMOPHILIC FACTOR HUMAN
     Dosage: 3200 INTERNATIONAL UNIT
     Route: 042
  4. HEMOFIL [Suspect]
     Active Substance: ANTIHEMOPHILIC FACTOR HUMAN
     Dosage: 3200 INTERNATIONAL UNIT
     Route: 065
  5. ADVATE [Suspect]
     Active Substance: ANTIHEMOPHILIC FACTOR, HUMAN RECOMBINANT
     Indication: Product used for unknown indication
     Dosage: 2000 INTERNATIONAL UNIT
     Route: 042
  6. ADVATE [Suspect]
     Active Substance: ANTIHEMOPHILIC FACTOR, HUMAN RECOMBINANT
     Indication: Product used for unknown indication
     Dosage: 2000 INTERNATIONAL UNIT
     Route: 042
  7. ADVATE [Suspect]
     Active Substance: ANTIHEMOPHILIC FACTOR, HUMAN RECOMBINANT
     Indication: Product used for unknown indication
     Dosage: 2000 INTERNATIONAL UNIT
     Route: 042

REACTIONS (34)
  - Cardiac arrest [Unknown]
  - Urinary retention [Unknown]
  - COVID-19 pneumonia [Unknown]
  - Renal surgery [Unknown]
  - Nephrolithiasis [Recovered/Resolved]
  - Haemorrhage [Recovered/Resolved]
  - Heart rate increased [Recovered/Resolved]
  - Bacterial infection [Unknown]
  - Blood pressure fluctuation [Unknown]
  - Oxygen saturation decreased [Recovered/Resolved]
  - Oedema [Unknown]
  - Blood urine present [Recovered/Resolved]
  - Haematoma [Recovered/Resolved]
  - Contusion [Recovered/Resolved]
  - Haemarthrosis [Recovering/Resolving]
  - Thrombosis in device [Unknown]
  - Urinary tract infection [Unknown]
  - Fall [Unknown]
  - Joint injury [Unknown]
  - Pain [Unknown]
  - Swelling [Unknown]
  - Pharyngeal swelling [Recovered/Resolved]
  - Thyroid mass [Unknown]
  - Pharyngeal contusion [Unknown]
  - Arthralgia [Recovered/Resolved]
  - Joint swelling [Recovered/Resolved]
  - Platelet disorder [Recovered/Resolved]
  - Tooth disorder [Recovered/Resolved]
  - Catheter placement [Recovered/Resolved]
  - Decreased appetite [Unknown]
  - Blood potassium decreased [Unknown]
  - Infection [Unknown]
  - Pruritus [Recovered/Resolved]
  - Dizziness [Unknown]

NARRATIVE: CASE EVENT DATE: 20200726
